FAERS Safety Report 25289838 (Version 1)
Quarter: 2025Q2

REPORT INFORMATION
  Report Type: Spontaneous
  Country: ES (occurrence: ES)
  Receive Date: 20250509
  Receipt Date: 20250509
  Transmission Date: 20250716
  Serious: Yes (Other)
  Sender: PFIZER
  Company Number: ES-BAYER-2025A058944

PATIENT
  Sex: Male

DRUGS (2)
  1. DOCETAXEL [Suspect]
     Active Substance: DOCETAXEL
     Indication: Hormone-dependent prostate cancer
  2. DAROLUTAMIDE [Suspect]
     Active Substance: DAROLUTAMIDE
     Indication: Hormone-dependent prostate cancer

REACTIONS (6)
  - Metastases to bone [Unknown]
  - Prostatic dysplasia [Unknown]
  - Metastases to nervous system [Unknown]
  - Adenocarcinoma [Unknown]
  - Asthenia [Unknown]
  - Prostatic specific antigen increased [Recovering/Resolving]
